FAERS Safety Report 15994440 (Version 1)
Quarter: 2019Q1

REPORT INFORMATION
  Report Type: Spontaneous
  Country: PT (occurrence: PT)
  Receive Date: 20190222
  Receipt Date: 20190222
  Transmission Date: 20190418
  Serious: Yes (Life-Threatening, Hospitalization, Other)
  Sender: FDA-Public Use
  Company Number: PT-BAUSCH-BL-2019-005195

PATIENT
  Age: 72 Year
  Sex: Female
  Weight: 70 kg

DRUGS (5)
  1. LOSARTAN PLUS HIDROCLOROTIAZIDA [Concomitant]
     Indication: PRODUCT USED FOR UNKNOWN INDICATION
     Dosage: 50MG PLUS 12.5MG
     Route: 065
  2. MIGRETIL [Concomitant]
     Active Substance: DIHYDROERGOTAMINE MESYLATE
     Indication: PRODUCT USED FOR UNKNOWN INDICATION
     Route: 065
  3. CRESTOR [Concomitant]
     Active Substance: ROSUVASTATIN CALCIUM
     Indication: PRODUCT USED FOR UNKNOWN INDICATION
     Route: 065
  4. NEBIVOLOL. [Concomitant]
     Active Substance: NEBIVOLOL
     Indication: PRODUCT USED FOR UNKNOWN INDICATION
     Route: 065
  5. METFORMIN [Suspect]
     Active Substance: METFORMIN HYDROCHLORIDE
     Indication: DIABETES MELLITUS
     Dosage: 500 MG PLUS 1000 MG PLUS 500 MG
     Route: 048

REACTIONS (8)
  - Asthenia [Recovering/Resolving]
  - Blood bicarbonate decreased [Recovering/Resolving]
  - Diarrhoea [Recovering/Resolving]
  - Metabolic acidosis [Recovering/Resolving]
  - Blood pH decreased [Recovering/Resolving]
  - Blood lactic acid increased [Recovering/Resolving]
  - Vomiting [Recovering/Resolving]
  - Hyperlactacidaemia [Recovering/Resolving]

NARRATIVE: CASE EVENT DATE: 20190206
